FAERS Safety Report 14819898 (Version 3)
Quarter: 2020Q2

REPORT INFORMATION
  Report Type: Report from Study
  Country: US (occurrence: US)
  Receive Date: 20180427
  Receipt Date: 20200615
  Transmission Date: 20200713
  Serious: Yes (Other)
  Sender: FDA-Public Use
  Company Number: US-AMGEN-USASL2018017570

PATIENT
  Age: 74 Year
  Sex: Male

DRUGS (6)
  1. CENTRUM MEN [Concomitant]
     Active Substance: MINERALS\VITAMINS
     Dosage: 8 MG, 200 MUG-600 MUG
  2. LEVOTHYROXINE. [Concomitant]
     Active Substance: LEVOTHYROXINE
     Dosage: 50 MUG, QD
     Route: 048
  3. REPATHA [Suspect]
     Active Substance: EVOLOCUMAB
     Indication: TYPE IIA HYPERLIPIDAEMIA
  4. REPATHA [Suspect]
     Active Substance: EVOLOCUMAB
     Indication: DYSLIPIDAEMIA
  5. REPATHA [Suspect]
     Active Substance: EVOLOCUMAB
     Indication: HYPERCHOLESTEROLAEMIA
     Dosage: 140 MILLIGRAM, Q2WK
     Route: 058
     Dates: start: 20180109
  6. REPATHA [Suspect]
     Active Substance: EVOLOCUMAB
     Indication: HYPERLIPIDAEMIA

REACTIONS (12)
  - Drug intolerance [Unknown]
  - Nasal congestion [Unknown]
  - Back pain [Unknown]
  - Rhinorrhoea [Unknown]
  - Cough [Unknown]
  - Hypertensive crisis [Unknown]
  - Carotid bruit [Unknown]
  - Dizziness [Unknown]
  - Orthostatic hypotension [Unknown]
  - Labile hypertension [Unknown]
  - Tachycardia [Unknown]
  - Presyncope [Unknown]

NARRATIVE: CASE EVENT DATE: 2018
